FAERS Safety Report 25494801 (Version 3)
Quarter: 2025Q4

REPORT INFORMATION
  Report Type: Report from Study
  Country: US (occurrence: US)
  Receive Date: 20250630
  Receipt Date: 20251018
  Transmission Date: 20260118
  Serious: No
  Sender: TRAVERE THERAPEUTICS
  Company Number: US-TRAVERE-2025TVT00842

PATIENT
  Age: 69 Year
  Sex: Male

DRUGS (12)
  1. FILSPARI [Suspect]
     Active Substance: SPARSENTAN
     Indication: IgA nephropathy
     Route: 048
     Dates: start: 20250201
  2. ALLOPURINOL [Concomitant]
     Active Substance: ALLOPURINOL
  3. ATORVASTATIN [Concomitant]
     Active Substance: ATORVASTATIN
  4. VENLAFAXINE [Concomitant]
     Active Substance: VENLAFAXINE HYDROCHLORIDE
  5. EPLERENONE [Concomitant]
     Active Substance: EPLERENONE
  6. ASPIRIN [Concomitant]
     Active Substance: ASPIRIN
  7. EMPAGLIFLOZIN [Concomitant]
     Active Substance: EMPAGLIFLOZIN
  8. MONTELUKAST [Concomitant]
     Active Substance: MONTELUKAST
  9. JARDIANCE [Concomitant]
     Active Substance: EMPAGLIFLOZIN
  10. VENLAFAXINE [Concomitant]
     Active Substance: VENLAFAXINE HYDROCHLORIDE
  11. ZOLPIDEM [Concomitant]
     Active Substance: ZOLPIDEM TARTRATE
  12. ALAWAY [Concomitant]
     Active Substance: KETOTIFEN FUMARATE

REACTIONS (4)
  - Faeces soft [None]
  - Diarrhoea [Unknown]
  - Visual impairment [None]
  - Dysphoria [Unknown]

NARRATIVE: CASE EVENT DATE: 20250201
